FAERS Safety Report 19847174 (Version 1)
Quarter: 2021Q3

REPORT INFORMATION
  Report Type: Spontaneous
  Country: US (occurrence: US)
  Receive Date: 20210917
  Receipt Date: 20210917
  Transmission Date: 20211014
  Serious: Yes (Death, Other)
  Sender: FDA-Public Use
  Company Number: US-PFIZER INC-202101033628

PATIENT
  Age: 14 Year
  Sex: Male

DRUGS (5)
  1. ONDANSETRON [Suspect]
     Active Substance: ONDANSETRON
     Indication: PREMEDICATION
     Dosage: UNK, CYCLIC
  2. CISPLATIN. [Suspect]
     Active Substance: CISPLATIN
     Indication: EMBRYONAL RHABDOMYOSARCOMA
     Dosage: 100 MG/M2 (IN 1 MG/ML D5 1/2 NS OVER 60 MINUTES), EVERY TWO WEEKS
     Route: 013
  3. DEXAMETHASONE. [Suspect]
     Active Substance: DEXAMETHASONE
     Indication: PREMEDICATION
     Dosage: UNK, CYCLIC
  4. DOXORUBICIN HCL [Suspect]
     Active Substance: DOXORUBICIN HYDROCHLORIDE
     Indication: EMBRYONAL RHABDOMYOSARCOMA
     Dosage: 4.5 MG/M2 (IN 25 ML D5 1/2 NS OVER 15 MINUTES), EVERY TWO WEEKS
     Route: 013
  5. ETOPOSIDE. [Suspect]
     Active Substance: ETOPOSIDE
     Indication: EMBRYONAL RHABDOMYOSARCOMA
     Dosage: UNK UNK, CYCLIC
     Route: 048

REACTIONS (7)
  - Neutropenia [Unknown]
  - Mucosal inflammation [Unknown]
  - Thrombocytopenia [Unknown]
  - Haematochezia [Unknown]
  - Leukopenia [Unknown]
  - Stomatitis [Unknown]
  - Tinnitus [Unknown]
